FAERS Safety Report 8560180-3 (Version None)
Quarter: 2012Q3

REPORT INFORMATION
  Report Type: 
  Country: None (occurrence: None)
  Receive Date: 20120802
  Receipt Date: 20120725
  Transmission Date: 20120928
  Serious: Yes (Other)
  Sender: FDA-Public Use
  Company Number: JP-VERTEX PHARMACEUTICALS INC.-AE-2012-010985

PATIENT
  Age: 51 Year
  Sex: Female

DRUGS (6)
  1. RIBAVIRIN [Concomitant]
     Indication: HEPATITIS C
     Route: 048
     Dates: start: 20120601, end: 20120621
  2. PEG-INTRON [Concomitant]
     Route: 058
     Dates: start: 20120622
  3. TELAVIC (TELAPREVIR) [Suspect]
     Indication: HEPATITIS C
     Route: 048
     Dates: start: 20120601, end: 20120621
  4. TELAVIC (TELAPREVIR) [Suspect]
     Route: 048
     Dates: start: 20120622
  5. RIBAVIRIN [Concomitant]
     Route: 048
     Dates: start: 20120622
  6. PEG-INTRON [Concomitant]
     Indication: HEPATITIS C
     Route: 058
     Dates: start: 20120601, end: 20120615

REACTIONS (8)
  - FATIGUE [None]
  - MALAISE [None]
  - NAUSEA [None]
  - INJECTION SITE ERYTHEMA [None]
  - PYREXIA [None]
  - INSOMNIA [None]
  - PANCYTOPENIA [None]
  - HYPERURICAEMIA [None]
